FAERS Safety Report 8654680 (Version 3)
Quarter: 2013Q4

REPORT INFORMATION
  Report Type: Spontaneous
  Country: US (occurrence: US)
  Receive Date: 20120709
  Receipt Date: 20131220
  Transmission Date: 20140711
  Serious: Yes (Other)
  Sender: FDA-Public Use
  Company Number: US-PFIZER INC-2012161474

PATIENT
  Age: 52 Year
  Sex: Female
  Weight: 59 kg

DRUGS (13)
  1. CHANTIX [Suspect]
     Dosage: STARTING PACK
     Route: 048
     Dates: start: 20090224
  2. CHANTIX [Suspect]
     Dosage: STARTING PACK
     Route: 048
     Dates: start: 20091120
  3. CHANTIX [Suspect]
     Dosage: 1 MG, CONTINUING MONTH PACK
     Route: 048
     Dates: start: 20091122
  4. CHANTIX [Suspect]
     Dosage: UNK
     Route: 048
     Dates: start: 20091122, end: 20110517
  5. CHANTIX [Suspect]
     Dosage: 1 MG, 2X/DAY
     Route: 048
     Dates: start: 20110411
  6. CHANTIX [Suspect]
     Dosage: 0.5 MG, 1X/DAY
     Route: 048
     Dates: start: 20110505
  7. VALACICLOVIR [Concomitant]
     Dosage: 1 G, 3X/DAY
     Route: 048
     Dates: start: 20110502
  8. ALPRAZOLAM [Concomitant]
     Indication: ANXIETY
     Dosage: 0.5 MG, 3X/DAY
     Dates: start: 20110505
  9. TRIAMCINOLONE [Concomitant]
     Indication: RASH
     Dosage: 0.1% CREAM 80 GM
     Route: 061
     Dates: start: 20110505
  10. METOPROLOL ER [Concomitant]
     Dosage: 50 MG, 1X/DAY
     Route: 048
     Dates: start: 20110505
  11. ZOLPIDEM [Concomitant]
     Dosage: 10 MG, 1X/DAY
     Route: 048
     Dates: start: 20110506
  12. HYDROCODONE/ACETAMINOPHEN [Concomitant]
     Indication: PAIN
     Dosage: 7.5-500
     Route: 048
     Dates: start: 20110509
  13. LEVOTHYROXINE [Concomitant]
     Dosage: 0.1 MG, 1X/DAY
     Route: 048
     Dates: start: 20110509

REACTIONS (5)
  - Intentional overdose [Unknown]
  - Suicide attempt [Unknown]
  - Mental disorder [Unknown]
  - Aggression [Unknown]
  - Abnormal behaviour [Unknown]
